FAERS Safety Report 10477307 (Version 2)
Quarter: 2014Q4

REPORT INFORMATION
  Report Type: Spontaneous
  Country: JP (occurrence: JP)
  Receive Date: 20140926
  Receipt Date: 20141010
  Transmission Date: 20150528
  Serious: Yes (Other)
  Sender: FDA-Public Use
  Company Number: JP-ASTRAZENECA-2014SE71840

PATIENT
  Age: 66 Year
  Sex: Male

DRUGS (2)
  1. SEROQUEL [Suspect]
     Active Substance: QUETIAPINE FUMARATE
     Indication: COGNITIVE DISORDER
     Route: 048
     Dates: start: 20140903
  2. MEMARY [Concomitant]
     Active Substance: MEMANTINE HYDROCHLORIDE
     Route: 048

REACTIONS (2)
  - Urinary retention [Unknown]
  - Off label use [Unknown]

NARRATIVE: CASE EVENT DATE: 20140903
